FAERS Safety Report 20171591 (Version 1)
Quarter: 2021Q4

REPORT INFORMATION
  Report Type: Spontaneous
  Country: US (occurrence: None)
  Receive Date: 20211210
  Receipt Date: 20211210
  Transmission Date: 20220303
  Serious: Yes (Hospitalization)
  Sender: FDA-Public Use
  Company Number: None

PATIENT
  Age: 66 Year
  Sex: Male
  Weight: 115.9 kg

DRUGS (2)
  1. DAPTOMYCIN [Suspect]
     Active Substance: DAPTOMYCIN
     Indication: Soft tissue infection
     Route: 042
     Dates: start: 20211022, end: 20211115
  2. DAPTOMYCIN [Suspect]
     Active Substance: DAPTOMYCIN
     Indication: Skin infection

REACTIONS (1)
  - Pneumonia [None]

NARRATIVE: CASE EVENT DATE: 20211115
